FAERS Safety Report 25876836 (Version 9)
Quarter: 2025Q4

REPORT INFORMATION
  Report Type: Spontaneous
  Country: EU (occurrence: EU)
  Receive Date: 20251003
  Receipt Date: 20251215
  Transmission Date: 20260118
  Serious: Yes (Other)
  Sender: ORGANON
  Company Number: EU-BIOGARAN-B25001673

PATIENT
  Age: 36 Year
  Sex: Female
  Weight: 48 kg

DRUGS (8)
  1. BETAMETHASONE DIPROPIONATE [Suspect]
     Active Substance: BETAMETHASONE DIPROPIONATE
     Indication: Eczema
     Dosage: UNK
     Route: 065
  2. DIPROSONE [Suspect]
     Active Substance: BETAMETHASONE DIPROPIONATE
     Indication: Eczema
     Dosage: UNK
     Route: 065
  3. DIPROSONE [Suspect]
     Active Substance: BETAMETHASONE DIPROPIONATE
     Dosage: UNK
     Route: 065
     Dates: start: 20161212, end: 20171219
  4. PREDNISOLONE [Suspect]
     Active Substance: PREDNISOLONE
     Indication: Eczema
     Dosage: UNK
     Route: 065
  5. HYDROCORTISONE [Suspect]
     Active Substance: HYDROCORTISONE
     Indication: Eczema
     Dosage: 2 DOSAGE FORM, QD
     Route: 061
     Dates: start: 20171120, end: 20171219
  6. HYDROCORTISONE [Suspect]
     Active Substance: HYDROCORTISONE
     Dosage: 4 DOSAGE FORM, QD
     Route: 061
     Dates: start: 20171219
  7. NERISONE [Suspect]
     Active Substance: DIFLUCORTOLONE VALERATE
     Indication: Eczema
     Dosage: 0.1 PERCENT
     Route: 065
     Dates: start: 20180910, end: 20190506
  8. LEVOCETIRIZINE DIHYDROCHLORIDE [Concomitant]
     Active Substance: LEVOCETIRIZINE DIHYDROCHLORIDE
     Indication: Product used for unknown indication
     Dosage: 5 MG
     Route: 065
     Dates: start: 20180910, end: 20190506

REACTIONS (10)
  - Skin plaque [Not Recovered/Not Resolved]
  - Burning sensation [Not Recovered/Not Resolved]
  - Skin exfoliation [Unknown]
  - Pruritus [Not Recovered/Not Resolved]
  - Insomnia [Not Recovered/Not Resolved]
  - Pruritus [Not Recovered/Not Resolved]
  - Hyperhidrosis [Not Recovered/Not Resolved]
  - Hot flush [Not Recovered/Not Resolved]
  - Affective disorder [Not Recovered/Not Resolved]
  - Mixed anxiety and depressive disorder [Not Recovered/Not Resolved]

NARRATIVE: CASE EVENT DATE: 20240901
